FAERS Safety Report 7676140-0 (Version None)
Quarter: 2011Q3

REPORT INFORMATION
  Report Type: 
  Country: None (occurrence: None)
  Receive Date: 20110811
  Receipt Date: 20110801
  Transmission Date: 20111222
  Serious: Yes (Hospitalization)
  Sender: FDA-Public Use
  Company Number: US-JNJFOC-20110100419

PATIENT
  Sex: Male
  Weight: 62.5 kg

DRUGS (7)
  1. INFLIXIMAB, RECOMBINANT [Suspect]
     Indication: CROHN'S DISEASE
     Dosage: 3RD INFUSION
     Route: 042
     Dates: start: 20101021
  2. INFLIXIMAB, RECOMBINANT [Suspect]
     Route: 042
     Dates: start: 20100923
  3. MESALAMINE [Concomitant]
     Route: 048
  4. CIPROFLOXACIN HCL [Concomitant]
  5. INFLIXIMAB, RECOMBINANT [Suspect]
     Route: 042
     Dates: start: 20100910
  6. PREDNISONE [Concomitant]
  7. SOLU-MEDROL [Concomitant]
     Indication: PREMEDICATION

REACTIONS (2)
  - UPPER LIMB FRACTURE [None]
  - CROHN'S DISEASE [None]
